FAERS Safety Report 8432414-7 (Version None)
Quarter: 2012Q2

REPORT INFORMATION
  Report Type: 
  Country: None (occurrence: None)
  Receive Date: 20120613
  Receipt Date: 20120608
  Transmission Date: 20120825
  Serious: Yes (Life-Threatening, Disabling)
  Sender: FDA-Public Use
  Company Number: NL-PFIZER INC-2012139445

PATIENT
  Age: 25 Year
  Sex: Female
  Weight: 52 kg

DRUGS (1)
  1. VENLAFAXINE HCL [Suspect]
     Indication: ANXIETY DISORDER
     Dosage: 37.5 MG, 2X/DAY
     Dates: start: 20120222, end: 20120415

REACTIONS (5)
  - SOMNOLENCE [None]
  - DEPRESSION [None]
  - SKIN ODOUR ABNORMAL [None]
  - IMPULSIVE BEHAVIOUR [None]
  - MOOD SWINGS [None]
